FAERS Safety Report 12302511 (Version 1)
Quarter: 2016Q2

REPORT INFORMATION
  Report Type: Spontaneous
  Country: US (occurrence: US)
  Receive Date: 20160425
  Receipt Date: 20160425
  Transmission Date: 20160815
  Serious: Yes (Life-Threatening, Hospitalization)
  Sender: FDA-Public Use
  Company Number: US-SA-2015SA059358

PATIENT
  Age: 52 Year
  Sex: Male
  Weight: 99.79 kg

DRUGS (7)
  1. COUMADIN [Suspect]
     Active Substance: WARFARIN SODIUM
     Route: 065
  2. WARFARIN [Concomitant]
     Active Substance: WARFARIN
     Indication: CEREBROVASCULAR ACCIDENT
     Route: 048
     Dates: start: 20130323, end: 20130403
  3. LOVENOX [Suspect]
     Active Substance: ENOXAPARIN SODIUM
     Indication: ANTICOAGULANT THERAPY
     Dosage: GAVE 1 SHOT PER DAY IN MORNING
     Route: 065
     Dates: start: 20130329, end: 20130404
  4. TRAMADOL. [Concomitant]
     Active Substance: TRAMADOL
     Indication: PAIN
     Route: 065
     Dates: start: 20130327, end: 20130403
  5. ASPIRIN. [Concomitant]
     Active Substance: ASPIRIN
     Indication: CEREBROVASCULAR ACCIDENT
     Route: 065
     Dates: start: 20130325
  6. LOVENOX [Suspect]
     Active Substance: ENOXAPARIN SODIUM
     Indication: CEREBROVASCULAR ACCIDENT
     Dosage: GAVE 1 SHOT PER DAY IN MORNING
     Route: 065
     Dates: start: 20130329, end: 20130404
  7. SIMVASTATIN. [Concomitant]
     Active Substance: SIMVASTATIN
     Indication: CEREBROVASCULAR ACCIDENT
     Route: 065
     Dates: start: 20130325, end: 20130430

REACTIONS (6)
  - Haematoma [Unknown]
  - Muscular weakness [Unknown]
  - Internal haemorrhage [Unknown]
  - Hypoaesthesia [Unknown]
  - Anaemia [Unknown]
  - Nerve injury [Unknown]

NARRATIVE: CASE EVENT DATE: 2013
